FAERS Safety Report 24189585 (Version 1)
Quarter: 2024Q3

REPORT INFORMATION
  Report Type: Spontaneous
  Country: US (occurrence: US)
  Receive Date: 20240808
  Receipt Date: 20240808
  Transmission Date: 20241016
  Serious: Yes (Hospitalization, Other)
  Sender: AMGEN
  Company Number: US-AMGEN-USASP2024153105

PATIENT

DRUGS (2)
  1. PREDNISONE [Suspect]
     Active Substance: PREDNISONE
     Indication: Immunosuppression
     Dosage: UNK
     Route: 065
  2. FILGRASTIM [Suspect]
     Active Substance: FILGRASTIM
     Indication: Neutropenia
     Route: 065

REACTIONS (11)
  - Gastroenteritis norovirus [Unknown]
  - Neutropenia [Unknown]
  - Kidney transplant rejection [Unknown]
  - Acute kidney injury [Unknown]
  - Renal transplant failure [Unknown]
  - Epstein-Barr viraemia [Unknown]
  - Cytomegalovirus viraemia [Unknown]
  - Weight decreased [Unknown]
  - Urinary tract infection [Unknown]
  - BK virus infection [Unknown]
  - Gastroenteritis bacterial [Unknown]
